FAERS Safety Report 25113488 (Version 1)
Quarter: 2025Q1

REPORT INFORMATION
  Report Type: Spontaneous
  Country: ES (occurrence: ES)
  Receive Date: 20250324
  Receipt Date: 20250324
  Transmission Date: 20250409
  Serious: Yes (Death, Hospitalization)
  Sender: NORDIC PHARMA
  Company Number: None

PATIENT
  Age: 41 Year
  Sex: Male

DRUGS (1)
  1. METHOTREXATE [Suspect]
     Active Substance: METHOTREXATE
     Indication: Acquired perforating dermatosis
     Route: 058
     Dates: start: 20250122

REACTIONS (6)
  - Toxicity to various agents [Fatal]
  - Pancytopenia [Fatal]
  - Contraindicated product administered [Fatal]
  - Skin injury [Fatal]
  - Mucosal inflammation [Fatal]
  - Product use in unapproved indication [Unknown]

NARRATIVE: CASE EVENT DATE: 20250122
